FAERS Safety Report 17609388 (Version 4)
Quarter: 2022Q4

REPORT INFORMATION
  Report Type: Report from Study
  Country: CA (occurrence: CA)
  Receive Date: 20200401
  Receipt Date: 20221025
  Transmission Date: 20230113
  Serious: Yes (Hospitalization, Other)
  Sender: FDA-Public Use
  Company Number: NVSC2020CA086933

PATIENT
  Age: 83 Year
  Sex: Male

DRUGS (2)
  1. ERELZI [Suspect]
     Active Substance: ETANERCEPT-SZZS
     Indication: Psoriatic arthropathy
     Dosage: 50 MG, QW
     Route: 058
     Dates: start: 20200119, end: 20200329
  2. ERELZI [Suspect]
     Active Substance: ETANERCEPT-SZZS
     Dosage: 50 MG, QW
     Route: 058
     Dates: start: 20200506

REACTIONS (12)
  - Fall [Unknown]
  - Diabetes mellitus [Unknown]
  - Accident [Unknown]
  - Dysstasia [Unknown]
  - Gait disturbance [Unknown]
  - Grip strength decreased [Unknown]
  - Balance disorder [Unknown]
  - General physical health deterioration [Unknown]
  - Pain [Unknown]
  - Insomnia [Unknown]
  - Burns second degree [Unknown]
  - Decreased interest [Unknown]

NARRATIVE: CASE EVENT DATE: 20200301
